FAERS Safety Report 8620574 (Version 3)
Quarter: 2012Q4

REPORT INFORMATION
  Report Type: 
  Country: DK (occurrence: IE)
  Receive Date: 20120618
  Receipt Date: 20121207
  Transmission Date: 20130627
  Serious: Yes (Hospitalization)
  Sender: FDA-Public Use
  Company Number: IE-FRI-1000031450

PATIENT
  Age: 72 Year
  Sex: Female

DRUGS (4)
  1. CITALOPRAM [Suspect]
  2. BENDROFLUMETHIAZIDE [Suspect]
  3. LISINOPRIL [Suspect]
  4. LANZOPRAZOLE [Suspect]

REACTIONS (1)
  - Status epilepticus [Unknown]
